FAERS Safety Report 9208767 (Version 1)
Quarter: 2013Q2

REPORT INFORMATION
  Report Type: Spontaneous
  Country: US (occurrence: US)
  Receive Date: 20130404
  Receipt Date: 20130404
  Transmission Date: 20140414
  Serious: No
  Sender: FDA-Public Use
  Company Number: US-PFIZER INC-2013102186

PATIENT
  Age: 74 Year
  Sex: Male

DRUGS (8)
  1. INLYTA [Suspect]
     Indication: RENAL CANCER
     Dosage: 5 MG, UNK
     Dates: start: 2012, end: 201208
  2. INLYTA [Suspect]
     Dosage: 1 MG, 2X/DAY
     Dates: start: 201208
  3. INLYTA [Suspect]
     Dosage: 1 MG, 2 TABLETS TWICE DAILY
     Dates: start: 20130313
  4. ATENOLOL [Concomitant]
     Dosage: UNK
  5. PLAVIX [Concomitant]
     Dosage: UNK
  6. PRAVASTATIN [Concomitant]
     Dosage: UNK
  7. ASPIRIN [Concomitant]
     Dosage: 325 MG, UNK
  8. CELEXA [Concomitant]
     Dosage: UNK

REACTIONS (3)
  - Bowel movement irregularity [Unknown]
  - Hypertension [Unknown]
  - Abdominal pain [Unknown]
